FAERS Safety Report 7929683-6 (Version None)
Quarter: 2011Q4

REPORT INFORMATION
  Report Type: 
  Country: None (occurrence: None)
  Receive Date: 20111121
  Receipt Date: 20111116
  Transmission Date: 20120403
  Serious: Yes (Hospitalization, Disabling, Other)
  Sender: FDA-Public Use
  Company Number: US-PFIZER INC-2011127095

PATIENT
  Sex: Male

DRUGS (1)
  1. CHANTIX [Suspect]
     Indication: SMOKING CESSATION THERAPY
     Dosage: UNK
     Dates: start: 20070301, end: 20070801

REACTIONS (8)
  - DEPRESSION [None]
  - SPINAL FRACTURE [None]
  - SUICIDE ATTEMPT [None]
  - INCONTINENCE [None]
  - BACK PAIN [None]
  - SUICIDAL IDEATION [None]
  - ANXIETY [None]
  - NERVE INJURY [None]
